FAERS Safety Report 21913508 (Version 1)
Quarter: 2023Q1

REPORT INFORMATION
  Report Type: Spontaneous
  Country: CN (occurrence: CN)
  Receive Date: 20230125
  Receipt Date: 20230125
  Transmission Date: 20230417
  Serious: Yes (Other)
  Sender: FDA-Public Use
  Company Number: None

PATIENT
  Age: 60 Year
  Sex: Female
  Weight: 55 kg

DRUGS (4)
  1. CYCLOPHOSPHAMIDE [Suspect]
     Active Substance: CYCLOPHOSPHAMIDE
     Indication: Breast cancer female
     Dosage: 0.9 G, QD (DILUTED WITH 0.9% SODIUM CHLORIDE INJECTION 50 ML)
     Route: 041
     Dates: start: 20221207, end: 20221207
  2. SODIUM CHLORIDE [Suspect]
     Active Substance: SODIUM CHLORIDE
     Indication: Medication dilution
     Dosage: 50 ML, QD, DOSAGE FORM: INJECTION (USED TO DILUTE CYCLOPHOSPHAMIDE 0.9 G)
     Route: 041
     Dates: start: 20221207, end: 20221207
  3. SODIUM CHLORIDE [Suspect]
     Active Substance: SODIUM CHLORIDE
     Dosage: 250 ML, QD (USED TO DILUTE DOCETAXEL 110 MG)
     Route: 041
     Dates: start: 20221207, end: 20221207
  4. DOCETAXEL [Suspect]
     Active Substance: DOCETAXEL
     Indication: Breast cancer female
     Dosage: 110 MG, QD (DILUTED WITH 0.9% SODIUM CHLORIDE INJECTION 250 ML)
     Route: 041
     Dates: start: 20221207, end: 20221207

REACTIONS (3)
  - White blood cell count decreased [Recovered/Resolved]
  - Fatigue [Unknown]
  - Asthenia [Unknown]

NARRATIVE: CASE EVENT DATE: 20221212
